FAERS Safety Report 9986015 (Version 1)
Quarter: 2014Q1

REPORT INFORMATION
  Report Type: Report from Study
  Country: US (occurrence: US)
  Receive Date: 20140307
  Receipt Date: 20140307
  Transmission Date: 20141002
  Serious: No
  Sender: FDA-Public Use
  Company Number: US-ABBVIE-13P-163-1086756-00

PATIENT
  Age: 50 Year
  Sex: Female

DRUGS (8)
  1. HUMIRA [Suspect]
     Indication: PSORIASIS
     Route: 058
     Dates: start: 20130408
  2. PHENOBARBITAL [Concomitant]
     Indication: EPILEPSY
  3. KEPPRA [Concomitant]
     Indication: EPILEPSY
  4. SUMATRIPTAN [Concomitant]
     Indication: EPILEPSY
  5. SUMATRIPTAN [Concomitant]
     Indication: MIGRAINE
  6. VITAMIN D [Concomitant]
     Indication: PRODUCT USED FOR UNKNOWN INDICATION
  7. VITAMIN B12 (CYANOCOBALAMIN AND ANALOGUES) [Concomitant]
     Indication: PRODUCT USED FOR UNKNOWN INDICATION
  8. MULTIVITAMINS [Concomitant]
     Indication: PRODUCT USED FOR UNKNOWN INDICATION
     Dosage: DAILY

REACTIONS (2)
  - Drug ineffective [Not Recovered/Not Resolved]
  - Arthralgia [Not Recovered/Not Resolved]
